FAERS Safety Report 22115319 (Version 1)
Quarter: 2023Q1

REPORT INFORMATION
  Report Type: Spontaneous
  Country: FR (occurrence: FR)
  Receive Date: 20230320
  Receipt Date: 20230320
  Transmission Date: 20230418
  Serious: Yes (Death)
  Sender: FDA-Public Use
  Company Number: FR-Merck Healthcare KGaA-9389759

PATIENT
  Age: 63 Year
  Sex: Female
  Weight: 47 kg

DRUGS (14)
  1. ERBITUX [Suspect]
     Active Substance: CETUXIMAB
     Indication: Squamous cell carcinoma
     Dosage: 615 MG, UNK
     Route: 042
     Dates: start: 20230211, end: 20230211
  2. BISOPROLOL [Suspect]
     Active Substance: BISOPROLOL
     Indication: Atrial fibrillation
     Dosage: 5 MG, DAILY
     Route: 048
     Dates: start: 20230120, end: 20230211
  3. DEXAMETHASONE [Suspect]
     Active Substance: DEXAMETHASONE
     Indication: Chemotherapy side effect prophylaxis
     Dosage: 20 MG, UNKNOWN
     Route: 042
     Dates: start: 20230211, end: 20230211
  4. AMIODARONE [Suspect]
     Active Substance: AMIODARONE
     Indication: Atrial fibrillation
     Dosage: 200 MG, DAILY
     Route: 048
     Dates: start: 20230125, end: 20230211
  5. PAROXETINE [Suspect]
     Active Substance: PAROXETINE
     Indication: Depression
     Dosage: 20 MG, DAILY
     Route: 048
     Dates: end: 20230210
  6. PANTOPRAZOLE [Suspect]
     Active Substance: PANTOPRAZOLE
     Indication: Prophylaxis against gastrointestinal ulcer
     Dosage: 40 MG, DAILY
     Route: 042
     Dates: start: 202301, end: 20230211
  7. CARBOPLATIN [Suspect]
     Active Substance: CARBOPLATIN
     Indication: Squamous cell carcinoma
     Dosage: 300 MG, SINGLE
     Route: 042
     Dates: start: 20230210, end: 20230210
  8. ONDANSETRON [Suspect]
     Active Substance: ONDANSETRON
     Indication: Chemotherapy side effect prophylaxis
     Dosage: 8 MG, DAILY
     Route: 042
     Dates: start: 20230210, end: 20230210
  9. KARDEGIC [Suspect]
     Active Substance: ASPIRIN DL-LYSINE
     Indication: Arterial disorder
     Dosage: UNK UNK, UNKNOWN
     Route: 048
     Dates: end: 20230211
  10. INNOHEP [Suspect]
     Active Substance: TINZAPARIN SODIUM
     Indication: Atrial fibrillation
     Dosage: 0.5 ML, DAILY
     Route: 058
     Dates: start: 20230131, end: 20230210
  11. PACLITAXEL [Suspect]
     Active Substance: PACLITAXEL
     Indication: Squamous cell carcinoma
     Dosage: 216 MG, SINGLE
     Route: 042
     Dates: start: 20230210, end: 20230210
  12. POLARAMINE [Suspect]
     Active Substance: DEXCHLORPHENIRAMINE MALEATE
     Indication: Chemotherapy side effect prophylaxis
     Dosage: UNK UNK, UNKNOWN
     Route: 042
     Dates: start: 20230211, end: 20230211
  13. MELALEUCA VIRIDIFLORA LEAF OIL [Suspect]
     Active Substance: NIAOULI OIL
     Indication: Bronchial secretion retention
     Dosage: 82.5 MG, DAILY
     Route: 065
     Dates: start: 20230210, end: 20230211
  14. ACETAMINOPHEN [Suspect]
     Active Substance: ACETAMINOPHEN
     Indication: Pain
     Dosage: 1 G, UNK
     Route: 042
     Dates: start: 20230208, end: 20230210

REACTIONS (1)
  - Sudden death [Fatal]

NARRATIVE: CASE EVENT DATE: 20230211
